FAERS Safety Report 13366688 (Version 1)
Quarter: 2017Q1

REPORT INFORMATION
  Report Type: Report from Study
  Country: US (occurrence: US)
  Receive Date: 20170323
  Receipt Date: 20170323
  Transmission Date: 20170429
  Serious: Yes (Other)
  Sender: FDA-Public Use
  Company Number: US-AMGEN-USASL2017041183

PATIENT
  Age: 59 Year
  Sex: Female

DRUGS (1)
  1. ENBREL [Suspect]
     Active Substance: ETANERCEPT
     Indication: ANKYLOSING SPONDYLITIS
     Dosage: UNK
     Route: 065

REACTIONS (7)
  - Cerebral disorder [Unknown]
  - Vomiting [Unknown]
  - Weight decreased [Unknown]
  - Neuropathy peripheral [Unknown]
  - Decreased appetite [Unknown]
  - Insomnia [Unknown]
  - Dysphagia [Unknown]
